FAERS Safety Report 7065859-0 (Version None)
Quarter: 2010Q4

REPORT INFORMATION
  Report Type: 
  Country: None (occurrence: None)
  Receive Date: 20101027
  Receipt Date: 20101015
  Transmission Date: 20110411
  Serious: Yes (Other)
  Sender: FDA-Public Use
  Company Number: DE-NICOBRDEV-2010-13788

PATIENT
  Sex: Female
  Weight: 77 kg

DRUGS (2)
  1. KENTERA (WATSON LABORATORIES) [Suspect]
     Indication: INCONTINENCE
     Dosage: 2 X WEEKLY
     Route: 062
     Dates: start: 20100317, end: 20100901
  2. PRESOMEN                           /00073001/ [Concomitant]
     Indication: MENOPAUSAL SYMPTOMS
     Dosage: 1 X 1
     Route: 065

REACTIONS (4)
  - DIZZINESS [None]
  - FALL [None]
  - MENISCUS LESION [None]
  - MUSCULOSKELETAL DISCOMFORT [None]
